FAERS Safety Report 11833045 (Version 2)
Quarter: 2016Q2

REPORT INFORMATION
  Report Type: Spontaneous
  Country: DE (occurrence: DE)
  Receive Date: 20151214
  Receipt Date: 20160615
  Transmission Date: 20160815
  Serious: Yes (Life-Threatening)
  Sender: FDA-Public Use
  Company Number: DE-JNJFOC-20151209819

PATIENT
  Age: 87 Year
  Sex: Male
  Weight: 75 kg

DRUGS (4)
  1. TRI-NORMIN [Concomitant]
     Active Substance: ATENOLOL\CHLORTHALIDONE\HYDRALAZINE HYDROCHLORIDE
     Indication: HYPERTENSION
     Dosage: 1-0-0
     Route: 065
  2. RIVAROXABAN [Suspect]
     Active Substance: RIVAROXABAN
     Indication: CEREBROVASCULAR ACCIDENT PROPHYLAXIS
     Route: 048
  3. RIVAROXABAN [Suspect]
     Active Substance: RIVAROXABAN
     Indication: ATRIAL FIBRILLATION
     Route: 048
  4. PRADAXA [Suspect]
     Active Substance: DABIGATRAN ETEXILATE MESYLATE
     Indication: ATRIAL FIBRILLATION
     Route: 065

REACTIONS (2)
  - Thalamus haemorrhage [Not Recovered/Not Resolved]
  - Hypertensive crisis [Not Recovered/Not Resolved]

NARRATIVE: CASE EVENT DATE: 20151118
